FAERS Safety Report 6010840-3 (Version None)
Quarter: 2008Q4

REPORT INFORMATION
  Report Type: 
  Country: None (occurrence: None)
  Receive Date: 20081216
  Receipt Date: 20081201
  Transmission Date: 20090506
  Serious: Yes (Hospitalization)
  Sender: FDA-Public Use
  Company Number: KV200800794

PATIENT
  Age: 61 Year
  Sex: Female
  Weight: 74.8 kg

DRUGS (3)
  1. ISOSORBIDE MONONITRATE [Suspect]
     Indication: HYPERTENSION
     Dosage: 30 MG, QD, ORAL
     Route: 048
     Dates: start: 20080901, end: 20081017
  2. ADVAIR DISKUS 100/50 [Concomitant]
  3. XANAX [Concomitant]

REACTIONS (7)
  - ABDOMINAL PAIN UPPER [None]
  - ASTHENIA [None]
  - CEREBROVASCULAR ACCIDENT [None]
  - DIZZINESS [None]
  - HAEMATOCHEZIA [None]
  - HEADACHE [None]
  - PRODUCT QUALITY ISSUE [None]
